FAERS Safety Report 8739078 (Version 2)
Quarter: 2012Q4

REPORT INFORMATION
  Report Type: 
  Country: DK (occurrence: DK)
  Receive Date: 20120823
  Receipt Date: 20120831
  Transmission Date: 20130627
  Serious: Yes (Hospitalization)
  Sender: FDA-Public Use
  Company Number: DK-PFIZER INC-2012204801

PATIENT
  Age: 42 Year
  Sex: Female

DRUGS (5)
  1. MORPHINE SULFATE [Suspect]
     Indication: EPIDURAL ANALGESIA
     Dosage: 2 mg, UNK
     Route: 008
  2. MORPHINE SULFATE [Suspect]
     Indication: ABDOMINAL PAIN UPPER
     Dosage: 10 mg, single
     Route: 042
  3. LIDOCAINE HCL [Suspect]
     Indication: EPIDURAL ANALGESIA
     Dosage: 3 ml of lidocaine 20 mg/ml
     Route: 008
  4. BUPIVACAINE HYDROCHLORIDE [Suspect]
     Indication: EPIDURAL ANALGESIA
     Dosage: UNK
     Route: 008
  5. ROPIVACAINE [Suspect]
     Indication: EPIDURAL ANALGESIA
     Dosage: 13 ml of ropivacaine 5 mg/ml
     Route: 008

REACTIONS (7)
  - Hyperaesthesia [Recovered/Resolved]
  - Erythema [Recovered/Resolved]
  - Pruritus [Recovered/Resolved]
  - Pain [None]
  - Allodynia [None]
  - Neuralgia [None]
  - Drug ineffective [None]
